FAERS Safety Report 21770516 (Version 4)
Quarter: 2023Q2

REPORT INFORMATION
  Report Type: Report from Study
  Country: US (occurrence: US)
  Receive Date: 20221223
  Receipt Date: 20230628
  Transmission Date: 20230722
  Serious: Yes (Other)
  Sender: FDA-Public Use
  Company Number: US-ABBVIE-4242606

PATIENT
  Age: 36 Year
  Sex: Female

DRUGS (2)
  1. HUMIRA [Suspect]
     Active Substance: ADALIMUMAB
     Indication: Psoriatic arthropathy
     Dosage: 40 MG?CITRATE FREE
     Route: 058
  2. HUMIRA [Suspect]
     Active Substance: ADALIMUMAB
     Dosage: 40 MG ?CITRATE FREE
     Route: 058
     Dates: start: 20221206

REACTIONS (18)
  - Hip surgery [Recovered/Resolved]
  - Headache [Recovering/Resolving]
  - Nausea [Recovered/Resolved]
  - Fatigue [Recovering/Resolving]
  - Ligament sprain [Recovered/Resolved]
  - Eczema [Recovered/Resolved]
  - Inflammation [Not Recovered/Not Resolved]
  - Road traffic accident [Recovering/Resolving]
  - Joint dislocation [Unknown]
  - Urticaria [Recovering/Resolving]
  - Lymphocyte count increased [Unknown]
  - Musculoskeletal discomfort [Unknown]
  - Arthralgia [Recovering/Resolving]
  - Discomfort [Unknown]
  - Eczema [Unknown]
  - Nausea [Recovered/Resolved]
  - Psoriatic arthropathy [Recovering/Resolving]
  - Skin exfoliation [Unknown]

NARRATIVE: CASE EVENT DATE: 20220205
